FAERS Safety Report 11225577 (Version 3)
Quarter: 2015Q3

REPORT INFORMATION
  Report Type: Spontaneous
  Country: JP (occurrence: JP)
  Receive Date: 20150629
  Receipt Date: 20150717
  Transmission Date: 20151125
  Serious: Yes (Hospitalization)
  Sender: FDA-Public Use
  Company Number: JP-GLAXOSMITHKLINE-JP2015JPN078309

PATIENT
  Age: 40 Year
  Sex: Male

DRUGS (11)
  1. LAMICTAL [Suspect]
     Active Substance: LAMOTRIGINE
     Indication: OBSESSIVE-COMPULSIVE DISORDER
     Dosage: 100 MG, 1D
     Route: 048
     Dates: start: 2014, end: 2014
  2. LAMICTAL [Suspect]
     Active Substance: LAMOTRIGINE
     Dosage: 400 MG, 1D
     Route: 048
     Dates: start: 2014, end: 20141031
  3. LAMICTAL [Suspect]
     Active Substance: LAMOTRIGINE
     Indication: SCHIZOPHRENIA
     Dosage: UNK
     Route: 048
     Dates: start: 20140705, end: 2014
  4. AKINETON [Concomitant]
     Active Substance: BIPERIDEN HYDROCHLORIDE
     Dosage: UNK
  5. INDERAL [Concomitant]
     Active Substance: PROPRANOLOL HYDROCHLORIDE
     Dosage: UNK
  6. PURSENNID [Concomitant]
     Active Substance: SENNOSIDES A AND B
     Dosage: UNK
  7. CLOZARIL [Concomitant]
     Active Substance: CLOZAPINE
     Dosage: UNK
  8. MAGLAX [Concomitant]
     Active Substance: MAGNESIUM OXIDE
     Dosage: UNK
  9. DEPAKENE [Concomitant]
     Active Substance: VALPROIC ACID
     Dosage: UNK
  10. ALOSENN [Concomitant]
     Active Substance: SENNA LEAF
     Dosage: UNK
  11. LAMICTAL [Suspect]
     Active Substance: LAMOTRIGINE
     Dosage: 150 MG, 1D
     Route: 048
     Dates: start: 2014, end: 2014

REACTIONS (9)
  - Nasopharyngitis [Unknown]
  - Posture abnormal [Unknown]
  - Asterixis [Unknown]
  - Dystonia [Recovering/Resolving]
  - Back pain [Unknown]
  - Dysstasia [Unknown]
  - Off label use [Unknown]
  - Pyrexia [Unknown]
  - Groin pain [Unknown]

NARRATIVE: CASE EVENT DATE: 2014
